FAERS Safety Report 18841248 (Version 1)
Quarter: 2021Q1

REPORT INFORMATION
  Report Type: Spontaneous
  Country: AR (occurrence: AR)
  Receive Date: 20210203
  Receipt Date: 20210203
  Transmission Date: 20210419
  Serious: Yes (Life-Threatening, Other)
  Sender: FDA-Public Use
  Company Number: AR-ASTRAZENECA-2021A026142

PATIENT
  Age: 35 Year

DRUGS (3)
  1. FREVIA [Suspect]
     Active Substance: BUDESONIDE\FORMOTEROL
     Indication: ASTHMA
     Dosage: UNKNOWN UNKNOWN
     Route: 055
  2. DECADRON [Concomitant]
     Active Substance: DEXAMETHASONE
     Route: 065
     Dates: start: 20210129
  3. HYDROCORTISONE. [Concomitant]
     Active Substance: HYDROCORTISONE
     Route: 065
     Dates: start: 20210129

REACTIONS (1)
  - Asthmatic crisis [Unknown]

NARRATIVE: CASE EVENT DATE: 20210126
